FAERS Safety Report 16197618 (Version 9)
Quarter: 2021Q2

REPORT INFORMATION
  Report Type: Spontaneous
  Country: US (occurrence: US)
  Receive Date: 20190415
  Receipt Date: 20210624
  Transmission Date: 20210716
  Serious: Yes (Other)
  Sender: FDA-Public Use
  Company Number: US-PFIZER INC-2019157349

PATIENT
  Age: 71 Year
  Sex: Female
  Weight: 126 kg

DRUGS (8)
  1. LYRICA [Suspect]
     Active Substance: PREGABALIN
     Indication: NEUROPATHY PERIPHERAL
  2. CEPHALEXINE [Concomitant]
     Active Substance: CEPHALEXIN
     Dosage: 500 MG
  3. LYRICA [Suspect]
     Active Substance: PREGABALIN
     Indication: PAIN
     Dosage: 50 MG, THRICE A DAY (50 MG IN THE MORNING, 50 IN THE AFTERNOON AND 50 IN THE EVENING)
  4. LYRICA [Suspect]
     Active Substance: PREGABALIN
     Indication: SCIATICA
     Dosage: 150 MG, TWICE A DAY (TAKES ABOUT 3 PM + 9 PM)
     Route: 048
  5. CLONAZEPAM. [Concomitant]
     Active Substance: CLONAZEPAM
     Dosage: 0.5 MG, 1X/DAY
  6. LISINOPRIL. [Concomitant]
     Active Substance: LISINOPRIL
     Dosage: 20 MG
  7. LYRICA [Suspect]
     Active Substance: PREGABALIN
     Indication: BACK PAIN
     Dosage: 150 MG, THRICE A DAY
     Route: 048
  8. POTASSIUM CHLORIDE. [Concomitant]
     Active Substance: POTASSIUM CHLORIDE
     Dosage: 10 MG

REACTIONS (7)
  - Foot fracture [Recovered/Resolved]
  - Intentional product misuse [Unknown]
  - Ankle fracture [Recovered/Resolved]
  - Memory impairment [Unknown]
  - Confusional state [Unknown]
  - Brain injury [Unknown]
  - Dementia [Unknown]

NARRATIVE: CASE EVENT DATE: 20190828
